FAERS Safety Report 8884944 (Version 1)
Quarter: 2012Q4

REPORT INFORMATION
  Report Type: 
  Country: US (occurrence: US)
  Receive Date: 20121102
  Receipt Date: 20121102
  Transmission Date: 20130627
  Serious: No
  Sender: FDA-Public Use
  Company Number: US-ASTRAZENECA-2012SE80103

PATIENT
  Age: 43 Year
  Sex: Male

DRUGS (6)
  1. NEXIUM [Suspect]
     Route: 048
  2. PRILOSEC [Suspect]
     Route: 048
  3. PRILOSEC [Suspect]
     Dosage: OMEPRAZOLE GENERIC FORM
     Route: 048
  4. PEPCID [Concomitant]
  5. PANTOPRAZOLE [Concomitant]
  6. ZEGERID [Concomitant]

REACTIONS (2)
  - Barrett^s oesophagus [Unknown]
  - Drug ineffective [Unknown]
